FAERS Safety Report 25577469 (Version 2)
Quarter: 2025Q3

REPORT INFORMATION
  Report Type: Report from Study
  Country: JP (occurrence: JP)
  Receive Date: 20250718
  Receipt Date: 20250723
  Transmission Date: 20251021
  Serious: Yes (Death)
  Sender: DAIICHI
  Company Number: JP-DSJP-DS-2025-153140-JP

PATIENT
  Age: 64 Year

DRUGS (1)
  1. ENHERTU [Suspect]
     Active Substance: FAM-TRASTUZUMAB DERUXTECAN-NXKI
     Indication: Breast cancer
     Route: 041

REACTIONS (2)
  - Disease progression [Fatal]
  - Interstitial lung disease [Unknown]
